FAERS Safety Report 7243056-3 (Version None)
Quarter: 2011Q1

REPORT INFORMATION
  Report Type: 
  Country: None (occurrence: None)
  Receive Date: 20110125
  Receipt Date: 20101029
  Transmission Date: 20110831
  Serious: No
  Sender: FDA-Public Use
  Company Number: US-AMGEN-USASP2010002160

PATIENT
  Age: 74 Year
  Sex: Female

DRUGS (12)
  1. PROBIOTICA [Concomitant]
  2. CALCIUM CITRATE W/VITAMIN D NOS [Concomitant]
  3. WELLBUTRIN [Concomitant]
  4. IRON [Concomitant]
  5. PROLIA [Suspect]
     Indication: OSTEOPOROSIS POSTMENOPAUSAL
     Dosage: 60 MG, Q6MO
     Dates: start: 20101007
  6. NEURONTIN [Concomitant]
  7. BACLOFEN [Concomitant]
  8. EVISTA                             /01303201/ [Concomitant]
  9. PROZAC                             /00724401/ [Concomitant]
  10. THYROID HORMONES [Concomitant]
  11. ALEVE [Concomitant]
  12. DEXLANSOPRAZOLE [Concomitant]

REACTIONS (4)
  - DYSURIA [None]
  - PARAESTHESIA [None]
  - MUSCLE SPASMS [None]
  - HYPOAESTHESIA [None]
